FAERS Safety Report 10332571 (Version 1)
Quarter: 2014Q3

REPORT INFORMATION
  Report Type: Spontaneous
  Country: US (occurrence: US)
  Receive Date: 20140722
  Receipt Date: 20140722
  Transmission Date: 20150326
  Serious: Yes (Death)
  Sender: FDA-Public Use
  Company Number: US-GLAXOSMITHKLINE-A1082055A

PATIENT
  Age: 54 Year
  Sex: Female

DRUGS (2)
  1. VOTRIENT [Suspect]
     Active Substance: PAZOPANIB HYDROCHLORIDE
     Indication: BREAST CANCER
     Dosage: 400MG PER DAY
     Route: 048
     Dates: start: 20140419
  2. MORPHINE [Concomitant]
     Active Substance: MORPHINE

REACTIONS (1)
  - Death [Fatal]
